FAERS Safety Report 5023864-X (Version None)
Quarter: 2006Q2

REPORT INFORMATION
  Report Type: 
  Country: None (occurrence: None)
  Receive Date: 20060426
  Receipt Date: 20060216
  Transmission Date: 20061013
  Serious: Yes (Other)
  Sender: FDA-Public Use
  Company Number: 2006024796

PATIENT
  Age: 61 Year
  Sex: Female
  Weight: 59.8748 kg

DRUGS (7)
  1. LYRICA [Suspect]
     Indication: NEURALGIA
     Dosage: 150 MG (50 MG, 3 IN 1 D), ORAL
     Route: 048
     Dates: start: 20060210, end: 20060212
  2. DARVON [Concomitant]
  3. TRAZODONE HCL [Concomitant]
  4. ZOLOFT [Concomitant]
  5. BUSPAR [Concomitant]
  6. ZYRTEC [Concomitant]
  7. WELLBUTRIN [Concomitant]

REACTIONS (5)
  - CONFUSIONAL STATE [None]
  - DIZZINESS [None]
  - HEADACHE [None]
  - PARAESTHESIA [None]
  - VISION BLURRED [None]
